FAERS Safety Report 15523246 (Version 1)
Quarter: 2018Q4

REPORT INFORMATION
  Report Type: Spontaneous
  Country: US (occurrence: US)
  Receive Date: 20181018
  Receipt Date: 20181018
  Transmission Date: 20190205
  Serious: No
  Sender: FDA-Public Use
  Company Number: US-AMGEN-USASP2018145439

PATIENT
  Age: 56 Year
  Sex: Female

DRUGS (1)
  1. AIMOVIG [Suspect]
     Active Substance: ERENUMAB-AOOE
     Indication: PRODUCT USED FOR UNKNOWN INDICATION
     Dosage: 70 MG, QMO
     Route: 065
     Dates: start: 20180916

REACTIONS (5)
  - Rash [Unknown]
  - Dizziness [Unknown]
  - Rash pruritic [Unknown]
  - Gait disturbance [Unknown]
  - Rash vesicular [Unknown]

NARRATIVE: CASE EVENT DATE: 2018
